FAERS Safety Report 14893087 (Version 2)
Quarter: 2018Q2

REPORT INFORMATION
  Report Type: Spontaneous
  Country: US (occurrence: US)
  Receive Date: 20180514
  Receipt Date: 20180521
  Transmission Date: 20180711
  Serious: Yes (Other)
  Sender: FDA-Public Use
  Company Number: US-BAUSCH-BL-2018-013782

PATIENT
  Age: 75 Year
  Sex: Male
  Weight: 92.62 kg

DRUGS (2)
  1. XIIDRA [Concomitant]
     Active Substance: LIFITEGRAST
     Indication: DRY EYE
     Route: 047
     Dates: start: 201805
  2. LOTEMAX [Suspect]
     Active Substance: LOTEPREDNOL ETABONATE
     Indication: NERVE INJURY
     Dosage: 6 MONTHS AGO
     Route: 047
     Dates: start: 201711, end: 2018

REACTIONS (3)
  - Blindness [Not Recovered/Not Resolved]
  - Off label use [Recovered/Resolved]
  - Product storage error [Unknown]

NARRATIVE: CASE EVENT DATE: 201711
